FAERS Safety Report 5728514-2 (Version None)
Quarter: 2008Q2

REPORT INFORMATION
  Report Type: 
  Country: None (occurrence: None)
  Receive Date: 20080506
  Receipt Date: 20071016
  Transmission Date: 20081010
  Serious: No
  Sender: FDA-Public Use
  Company Number: A0687992A

PATIENT
  Age: 50 Year
  Sex: Female

DRUGS (1)
  1. AMOXIL [Suspect]
     Indication: BRONCHITIS
     Dosage: 1CAP THREE TIMES PER DAY
     Route: 048
     Dates: start: 19870101, end: 19870101

REACTIONS (1)
  - ABDOMINAL PAIN UPPER [None]
